FAERS Safety Report 9245785 (Version 1)
Quarter: 2013Q2

REPORT INFORMATION
  Report Type: Spontaneous
  Country: US (occurrence: US)
  Receive Date: 20130422
  Receipt Date: 20130422
  Transmission Date: 20140414
  Serious: Yes (Hospitalization)
  Sender: FDA-Public Use
  Company Number: US-BAYER-2013-046353

PATIENT
  Age: 65 Year
  Sex: Male

DRUGS (9)
  1. BAYER GENUINE ASPIRIN ORIGINAL STRENGTH [Suspect]
     Indication: CORONARY ARTERY DISEASE
     Dosage: 325 MG, QD
     Route: 048
  2. NOVOLIN 70/30 INNOLET [Suspect]
     Indication: DIABETES MELLITUS
     Dosage: 110 INTERNATIONAL UNIT
  3. HUMULIN 70/30 [Suspect]
     Indication: TYPE 2 DIABETES MELLITUS
     Dosage: 110 INTERNATIONAL UNIT
  4. LANTUS [Suspect]
     Indication: TYPE 2 DIABETES MELLITUS
     Dosage: 110 INTERNATIONAL UNIT
  5. SIMVASTATIN [Concomitant]
  6. ISOSORBIDE [Concomitant]
  7. MORPHINE [Concomitant]
  8. LEVOTHYROXINE [Concomitant]
     Dosage: UNK
     Dates: start: 20110920
  9. SILVADENE [Concomitant]
     Dosage: UNK
     Dates: start: 20110920

REACTIONS (4)
  - Cellulitis [Recovered/Resolved]
  - Gout [None]
  - Pain [None]
  - Abasia [None]
